FAERS Safety Report 8169611-4 (Version None)
Quarter: 2012Q1

REPORT INFORMATION
  Report Type: 
  Country: None (occurrence: None)
  Receive Date: 20120228
  Receipt Date: 20120216
  Transmission Date: 20120608
  Serious: No
  Sender: FDA-Public Use
  Company Number: US-JNJFOC-20120209007

PATIENT
  Sex: Male
  Weight: 68.04 kg

DRUGS (2)
  1. DURAGESIC-100 [Suspect]
     Indication: CARPAL TUNNEL SYNDROME
     Dosage: EVERY 48-72 HOURS
     Route: 062
     Dates: start: 20120131
  2. DURAGESIC-100 [Suspect]
     Indication: BACK PAIN
     Dosage: EVERY 48-72 HOURS
     Route: 062
     Dates: start: 20120131

REACTIONS (3)
  - PRODUCT QUALITY ISSUE [None]
  - SKIN IRRITATION [None]
  - WRONG TECHNIQUE IN DRUG USAGE PROCESS [None]
